FAERS Safety Report 14358229 (Version 1)
Quarter: 2018Q1

REPORT INFORMATION
  Report Type: Spontaneous
  Country: US (occurrence: US)
  Receive Date: 20180105
  Receipt Date: 20180105
  Transmission Date: 20180509
  Serious: No
  Sender: FDA-Public Use
  Company Number: US-SA-2017SA195077

PATIENT
  Age: 23 Year
  Sex: Female
  Weight: 81.64 kg

DRUGS (4)
  1. DUPIXENT [Suspect]
     Active Substance: DUPILUMAB
     Indication: DERMATITIS ATOPIC
     Route: 058
     Dates: start: 2017, end: 20171002
  2. DUPIXENT [Suspect]
     Active Substance: DUPILUMAB
     Indication: DERMATITIS ATOPIC
     Route: 058
     Dates: start: 20170922, end: 20170922
  3. CLOBETASOL [Concomitant]
     Active Substance: CLOBETASOL
     Dosage: STRENGTH: 0.05% SOLUTION?FORM: CREAM/OINTMENT
     Route: 065
  4. TRIAMCINOLONE [Concomitant]
     Active Substance: TRIAMCINOLONE
     Indication: THERAPEUTIC RESPONSE CHANGED
     Dosage: STRENGTH: 0.1%
     Route: 065

REACTIONS (3)
  - Pain [Unknown]
  - Erythema nodosum [Unknown]
  - Product use issue [Unknown]

NARRATIVE: CASE EVENT DATE: 20170922
